FAERS Safety Report 7578550-9 (Version None)
Quarter: 2011Q2

REPORT INFORMATION
  Report Type: 
  Country: None (occurrence: None)
  Receive Date: 20110525
  Receipt Date: 20110428
  Transmission Date: 20111010
  Serious: No
  Sender: FDA-Public Use
  Company Number: 326036

PATIENT
  Age: 66 Year
  Sex: Male
  Weight: 103.4 kg

DRUGS (7)
  1. VICTOZA [Suspect]
     Indication: TYPE 2 DIABETES MELLITUS
     Dosage: 1.2 MG, QD, SUBCUTANEOUS
     Route: 058
  2. LISINOPRIL [Concomitant]
  3. OMEPRAZOLE [Concomitant]
  4. NIASPAN ER (NICOTINIC ACID) [Concomitant]
  5. GLUCOVANCE [Concomitant]
  6. ASPIRIN [Concomitant]
  7. METFORMIN HCL [Suspect]
     Indication: TYPE 2 DIABETES MELLITUS
     Dosage: 500 MG, BID

REACTIONS (2)
  - BLOOD GLUCOSE INCREASED [None]
  - HEADACHE [None]
